FAERS Safety Report 8918885 (Version 1)
Quarter: 2012Q4

REPORT INFORMATION
  Report Type: Spontaneous
  Country: US (occurrence: None)
  Receive Date: 20121115
  Receipt Date: 20121115
  Transmission Date: 20130627
  Serious: Yes (Life-Threatening, Other)
  Sender: FDA-Public Use
  Company Number: None

PATIENT
  Age: 32 Year
  Sex: Female
  Weight: 81.65 kg

DRUGS (2)
  1. CYMBALTA 60MG ELI LILLY [Suspect]
     Indication: DEPRESSION
     Route: 048
  2. CYMBALTA 60MG ELI LILLY [Suspect]
     Indication: BACK PAIN
     Route: 048

REACTIONS (8)
  - Drug withdrawal syndrome [None]
  - Paraesthesia [None]
  - Economic problem [None]
  - Loss of employment [None]
  - Tremor [None]
  - Asthenia [None]
  - Depression [None]
  - Diarrhoea [None]
